FAERS Safety Report 10936699 (Version 1)
Quarter: 2015Q1

REPORT INFORMATION
  Report Type: Spontaneous
  Country: US (occurrence: None)
  Receive Date: 20150212
  Receipt Date: 20150212
  Transmission Date: 20150721
  Serious: No
  Sender: FDA-Public Use
  Company Number: TPA2011A00466

PATIENT
  Age: 71 Year
  Sex: Male
  Weight: 106.5 kg

DRUGS (5)
  1. CARDURA [Concomitant]
     Active Substance: DOXAZOSIN MESYLATE
  2. ULORIC [Suspect]
     Active Substance: FEBUXOSTAT
     Indication: GOUT
     Route: 048
     Dates: start: 20110125, end: 20110201
  3. LOVASTATIN (LOVASTATIN) [Concomitant]
     Active Substance: LOVASTATIN
  4. HCT (HYDROCHLOROTHIAZIDE) [Concomitant]
     Active Substance: HYDROCHLOROTHIAZIDE
  5. ATENOLOL (ATENOLOL) [Concomitant]
     Active Substance: ATENOLOL

REACTIONS (1)
  - Blood urine present [None]

NARRATIVE: CASE EVENT DATE: 20110130
